FAERS Safety Report 5738048-7 (Version None)
Quarter: 2008Q2

REPORT INFORMATION
  Report Type: 
  Country: None (occurrence: None)
  Receive Date: 20080509
  Receipt Date: 20070730
  Transmission Date: 20081010
  Serious: Yes (Hospitalization)
  Sender: FDA-Public Use
  Company Number: 509620

PATIENT
  Age: 46 Year
  Sex: Male

DRUGS (1)
  1. FUZEON [Suspect]
     Indication: AUTOIMMUNE DISORDER

REACTIONS (2)
  - INJECTION SITE REACTION [None]
  - SKIN INFECTION [None]
